FAERS Safety Report 5972661-7 (Version None)
Quarter: 2008Q4

REPORT INFORMATION
  Report Type: 
  Country: None (occurrence: None)
  Receive Date: 20081201
  Receipt Date: 20081120
  Transmission Date: 20090506
  Serious: Yes (Hospitalization)
  Sender: FDA-Public Use
  Company Number: JP-NOVOPROD-281628

PATIENT
  Age: 68 Year
  Sex: Male

DRUGS (6)
  1. PENFILL 30R CHU [Suspect]
     Indication: TYPE 2 DIABETES MELLITUS
     Dosage: (20-0-10)
     Dates: start: 20051001
  2. PENFILL R CHU [Suspect]
     Indication: TYPE 2 DIABETES MELLITUS
     Dosage: NOT REPORTED
     Route: 058
     Dates: start: 20051201
  3. PENFILL 10R CHU [Suspect]
     Indication: TYPE 2 DIABETES MELLITUS
     Dosage: NOT REPORTED
     Route: 058
  4. PENFILL N CHU [Suspect]
     Indication: TYPE 2 DIABETES MELLITUS
     Dosage: NOT REPORTED
     Route: 058
  5. PENFILL R CHU [Suspect]
     Dosage: (4-4-2)
     Route: 058
     Dates: start: 20071001
  6. HUMALOG [Concomitant]
     Dosage: (4-4-2)
     Route: 058
     Dates: start: 20071203

REACTIONS (2)
  - ANTI-INSULIN ANTIBODY [None]
  - HYPOGLYCAEMIA [None]
